FAERS Safety Report 23474961 (Version 1)
Quarter: 2024Q1

REPORT INFORMATION
  Report Type: Report from Study
  Country: US (occurrence: US)
  Receive Date: 20240204
  Receipt Date: 20240204
  Transmission Date: 20240410
  Serious: Yes (Other)
  Sender: FDA-Public Use
  Company Number: US-EXELIXIS-CABO-23069810

PATIENT
  Sex: Female

DRUGS (2)
  1. CABOMETYX [Suspect]
     Active Substance: CABOZANTINIB S-MALATE
     Indication: Renal cancer
     Dosage: 40 MG, QD
     Route: 048
  2. CABOMETYX [Suspect]
     Active Substance: CABOZANTINIB S-MALATE
     Dosage: 40 MG, QD
     Route: 048

REACTIONS (13)
  - Dehydration [Unknown]
  - Blood pressure increased [Unknown]
  - Blood magnesium decreased [Unknown]
  - Nausea [Recovering/Resolving]
  - Pain in extremity [Unknown]
  - Pruritus [Recovering/Resolving]
  - Constipation [Recovered/Resolved]
  - Muscle spasms [Unknown]
  - Oral pain [Unknown]
  - Hypersensitivity [Unknown]
  - Lip swelling [Recovered/Resolved]
  - Lip pain [Unknown]
  - Confusional state [Unknown]
